FAERS Safety Report 13170264 (Version 1)
Quarter: 2017Q1

REPORT INFORMATION
  Report Type: Spontaneous
  Country: CA (occurrence: CA)
  Receive Date: 20170201
  Receipt Date: 20170201
  Transmission Date: 20170428
  Serious: Yes (Other)
  Sender: FDA-Public Use
  Company Number: CA-TEVA-734748ACC

PATIENT
  Age: 16 Year
  Sex: Male
  Weight: 62 kg

DRUGS (2)
  1. HALOPERIDOL. [Suspect]
     Active Substance: HALOPERIDOL
     Indication: PSYCHOMOTOR HYPERACTIVITY
     Route: 048
  2. LORAZEPAM. [Concomitant]
     Active Substance: LORAZEPAM

REACTIONS (6)
  - Dyspnoea [Recovered/Resolved]
  - Facial paralysis [Recovered/Resolved]
  - Heart rate increased [Recovered/Resolved]
  - Tongue movement disturbance [Recovered/Resolved]
  - Blood pressure systolic increased [Recovered/Resolved]
  - Cardio-respiratory arrest [Recovered/Resolved]
